FAERS Safety Report 5672513-6 (Version None)
Quarter: 2008Q1

REPORT INFORMATION
  Report Type: 
  Country: None (occurrence: None)
  Receive Date: 20080319
  Receipt Date: 20080226
  Transmission Date: 20080703
  Serious: Yes (Hospitalization)
  Sender: FDA-Public Use
  Company Number: NL-ELI_LILLY_AND_COMPANY-NL200802006469

PATIENT
  Sex: Female
  Weight: 64.9 kg

DRUGS (7)
  1. SOMATROPIN [Suspect]
     Indication: GROWTH HORMONE DEFICIENCY
     Dosage: 0.4 MG, UNKNOWN
     Route: 058
     Dates: start: 19970321
  2. THYROXIN [Concomitant]
     Indication: SECONDARY HYPOTHYROIDISM
     Dosage: UNK, UNK
     Dates: start: 19970101
  3. CYCLOCUR [Concomitant]
     Indication: HYPOGONADISM FEMALE
     Dosage: UNK, UNK
     Dates: start: 19970101
  4. HYDROCORTISONE [Concomitant]
     Indication: SECONDARY ADRENOCORTICAL INSUFFICIENCY
     Dosage: UNK, UNK
     Dates: start: 19970101
  5. FOSAMAX [Concomitant]
     Indication: OSTEOPOROSIS
     Dosage: UNK, UNK
     Dates: start: 19970101
  6. EFFEXOR [Concomitant]
     Indication: DEPRESSION
     Dosage: UNK, UNK
     Dates: start: 20050101
  7. DHEA [Concomitant]
     Indication: DEPRESSION
     Dates: start: 20050101

REACTIONS (1)
  - SECONDARY ADRENOCORTICAL INSUFFICIENCY [None]
